FAERS Safety Report 10041769 (Version 1)
Quarter: 2014Q1

REPORT INFORMATION
  Report Type: Spontaneous
  Country: US (occurrence: US)
  Receive Date: 20140327
  Receipt Date: 20140327
  Transmission Date: 20141002
  Serious: No
  Sender: FDA-Public Use
  Company Number: US-TARO-2013P1020839

PATIENT
  Age: 27 Year
  Sex: Male
  Weight: 74.84 kg

DRUGS (2)
  1. NYSTATIN ORAL SUSPENSION USP 100,000 UNITS/ML [Suspect]
     Route: 048
     Dates: start: 20131027
  2. RAINBOW LIGHT VITAMIN [Concomitant]

REACTIONS (1)
  - Oral fungal infection [Unknown]
